FAERS Safety Report 11643956 (Version 4)
Quarter: 2016Q1

REPORT INFORMATION
  Report Type: Spontaneous
  Country: US (occurrence: US)
  Receive Date: 20151020
  Receipt Date: 20160323
  Transmission Date: 20160525
  Serious: Yes (Hospitalization)
  Sender: FDA-Public Use
  Company Number: US-ASTRAZENECA-2012SE74443

PATIENT
  Age: 705 Month
  Sex: Female
  Weight: 68 kg

DRUGS (17)
  1. ALKA SELTZER [Concomitant]
     Active Substance: ANHYDROUS CITRIC ACID\ASPIRIN\SODIUM BICARBONATE
     Indication: DYSPEPSIA
  2. CLOPIDOGREL [Concomitant]
     Active Substance: CLOPIDOGREL BISULFATE
  3. TUMS [Concomitant]
     Active Substance: CALCIUM CARBONATE
     Indication: DYSPEPSIA
  4. PRILOSEC [Concomitant]
     Active Substance: OMEPRAZOLE MAGNESIUM
  5. GABAPENTIN. [Concomitant]
     Active Substance: GABAPENTIN
  6. CRESTOR [Suspect]
     Active Substance: ROSUVASTATIN CALCIUM
     Indication: BLOOD CHOLESTEROL INCREASED
     Route: 048
     Dates: start: 20110726, end: 20120122
  7. MYLANTA [Concomitant]
     Active Substance: ALUMINUM HYDROXIDE\DIMETHICONE\MAGNESIUM HYDROXIDE
     Indication: DYSPEPSIA
  8. CARVEDILOL. [Concomitant]
     Active Substance: CARVEDILOL
  9. DIOVAN [Concomitant]
     Active Substance: VALSARTAN
  10. AMBIEN [Concomitant]
     Active Substance: ZOLPIDEM TARTRATE
  11. CRESTOR [Suspect]
     Active Substance: ROSUVASTATIN CALCIUM
     Indication: BLOOD CHOLESTEROL INCREASED
     Route: 048
  12. FUROSEMIDE. [Concomitant]
     Active Substance: FUROSEMIDE
  13. SPIRONOLACTON [Concomitant]
     Active Substance: SPIRONOLACTONE
  14. MACROBID [Concomitant]
     Active Substance: NITROFURANTOIN\NITROFURANTOIN MONOHYDRATE
  15. NORCO [Concomitant]
     Active Substance: ACETAMINOPHEN\HYDROCODONE BITARTRATE
  16. ATORVASTATIN [Concomitant]
     Active Substance: ATORVASTATIN
  17. ZOFRAN [Concomitant]
     Active Substance: ONDANSETRON HYDROCHLORIDE

REACTIONS (12)
  - Hypertension [Not Recovered/Not Resolved]
  - Hyperglycaemia [Not Recovered/Not Resolved]
  - Cardiac failure congestive [Unknown]
  - Dyspepsia [Unknown]
  - Type 2 diabetes mellitus [Not Recovered/Not Resolved]
  - Blood triglycerides increased [Unknown]
  - Cardiovascular disorder [Not Recovered/Not Resolved]
  - Arrhythmia [Unknown]
  - Angina pectoris [Unknown]
  - Polycystic ovaries [Unknown]
  - Cardiomyopathy [Unknown]
  - Gestational diabetes [Unknown]

NARRATIVE: CASE EVENT DATE: 200010
